FAERS Safety Report 4748064-X (Version None)
Quarter: 2005Q3

REPORT INFORMATION
  Report Type: 
  Country: None (occurrence: None)
  Receive Date: 20050818
  Receipt Date: 20050503
  Transmission Date: 20060218
  Serious: Yes (Hospitalization)
  Sender: FDA-Public Use
  Company Number: DE-GLAXOSMITHKLINE-B0379845A

PATIENT
  Age: 63 Year
  Sex: Female
  Weight: 52 kg

DRUGS (20)
  1. TOPOTECAN HYDROCHLORIDE [Suspect]
     Dosage: 1.42MG PER DAY
     Route: 042
     Dates: start: 20050330, end: 20050404
  2. CISPLATIN [Suspect]
     Dosage: 75MGM2 PER DAY
     Route: 042
     Dates: start: 20050404, end: 20050404
  3. TAVOR [Concomitant]
     Indication: DEPRESSED MOOD
     Dosage: 1MG PER DAY
     Route: 048
     Dates: start: 20050210
  4. ATOSIL [Concomitant]
     Indication: DEPRESSED MOOD
     Dosage: 20DROP PER DAY
     Route: 048
     Dates: start: 20050329
  5. METOCLOPRAMID [Concomitant]
     Indication: NAUSEA
     Dosage: 45DROP THREE TIMES PER DAY
     Route: 048
     Dates: start: 20050329
  6. TAVOR [Concomitant]
     Dosage: 20UG PER DAY
     Dates: start: 20050329
  7. KEVATRIL [Concomitant]
     Dosage: 1UG PER DAY
     Route: 042
     Dates: start: 20050308, end: 20050503
  8. VERGENTAN [Concomitant]
     Dosage: 100MG PER DAY
     Route: 042
     Dates: start: 20050304, end: 20050502
  9. FORTECORTIN [Concomitant]
     Dates: start: 20050304, end: 20050503
  10. PARACODIN BITARTRATE TAB [Concomitant]
     Indication: COUGH
     Route: 048
  11. NOVAMIN [Concomitant]
     Indication: PROPHYLAXIS
     Route: 048
  12. XIMOVAN [Concomitant]
     Dosage: 7.5MG PER DAY
     Route: 048
  13. THEOPHYLLINE [Concomitant]
     Dosage: 400MG PER DAY
     Route: 048
  14. PREDNISONE [Concomitant]
     Dosage: 5MG PER DAY
     Route: 048
  15. ADVAIR DISKUS 100/50 [Concomitant]
     Dosage: 30MG PER DAY
     Route: 055
  16. METOCLOPRAMID [Concomitant]
     Dosage: 20DROP PER DAY
     Route: 048
  17. SILOMAT [Concomitant]
     Indication: COUGH
     Dosage: 20DROP PER DAY
     Route: 048
  18. FORADIL [Concomitant]
     Dosage: 24MG PER DAY
     Route: 048
  19. AVELOX [Concomitant]
     Indication: STOMATITIS
     Dosage: 400MG PER DAY
     Dates: start: 20050329, end: 20050414
  20. DIAZEPAM [Concomitant]
     Indication: PROPHYLAXIS
     Dosage: 10MG PER DAY
     Route: 048
     Dates: start: 20050502

REACTIONS (2)
  - DEVELOPMENTAL DELAY [None]
  - DIZZINESS [None]
